FAERS Safety Report 15696065 (Version 1)
Quarter: 2018Q4

REPORT INFORMATION
  Report Type: Report from Study
  Country: US (occurrence: US)
  Receive Date: 20181206
  Receipt Date: 20181206
  Transmission Date: 20190205
  Serious: Yes (Hospitalization)
  Sender: FDA-Public Use
  Company Number: US-EXELIXIS-XL18418015564

PATIENT
  Age: 75 Year
  Sex: Male
  Weight: 95.8 kg

DRUGS (3)
  1. XL184 [Suspect]
     Active Substance: CABOZANTINIB
     Dosage: 40 MG, QD
     Route: 048
     Dates: start: 20180518, end: 20180806
  2. XARELTO [Concomitant]
     Active Substance: RIVAROXABAN
  3. XL184 [Suspect]
     Active Substance: CABOZANTINIB
     Indication: RENAL CELL CARCINOMA
     Dosage: 60 MG, QD
     Route: 048
     Dates: start: 20140425

REACTIONS (5)
  - Skin infection [Unknown]
  - Acute kidney injury [Unknown]
  - Hypotension [Unknown]
  - Skin ulcer [Unknown]
  - Sepsis [Unknown]

NARRATIVE: CASE EVENT DATE: 20180807
